FAERS Safety Report 4819618-7 (Version None)
Quarter: 2005Q4

REPORT INFORMATION
  Report Type: 
  Country: None (occurrence: None)
  Receive Date: 20051101
  Receipt Date: 20051101
  Transmission Date: 20060501
  Serious: Yes (Hospitalization)
  Sender: FDA-Public Use
  Company Number: None

PATIENT
  Age: 58 Year
  Sex: Male
  Weight: 86.3 kg

DRUGS (6)
  1. BACTRIM DS [Suspect]
     Indication: CHROMATURIA
     Dosage: 800/160MG PO Q12HRS X 10 DAYS
     Dates: start: 20051019, end: 20051024
  2. BACTRIM DS [Suspect]
     Indication: URINARY TRACT INFECTION
     Dosage: 800/160MG PO Q12HRS X 10 DAYS
     Dates: start: 20051019, end: 20051024
  3. FUROSEMIDE [Concomitant]
  4. LACTULOSE [Concomitant]
  5. OMEPRAZOLE [Concomitant]
  6. PROPRANOLOL [Concomitant]

REACTIONS (4)
  - ABDOMINAL PAIN UPPER [None]
  - BLOOD BILIRUBIN INCREASED [None]
  - FATIGUE [None]
  - JAUNDICE [None]
